FAERS Safety Report 25954704 (Version 2)
Quarter: 2025Q4

REPORT INFORMATION
  Report Type: Spontaneous
  Country: EU (occurrence: EU)
  Receive Date: 20251024
  Receipt Date: 20251120
  Transmission Date: 20260117
  Serious: Yes (Other)
  Sender: JOHNSON AND JOHNSON
  Company Number: EU-JNJFOC-20250904528

PATIENT
  Sex: Female
  Weight: 57 kg

DRUGS (3)
  1. RYBREVANT [Suspect]
     Active Substance: AMIVANTAMAB-VMJW
     Indication: Non-small cell lung cancer metastatic
     Dosage: INFUSION: 7
     Route: 065
     Dates: end: 20250828
  2. RYBREVANT [Suspect]
     Active Substance: AMIVANTAMAB-VMJW
     Route: 065
  3. RYBREVANT [Suspect]
     Active Substance: AMIVANTAMAB-VMJW
     Dosage: DATE OF LAST INFUSION: 23-JUN-2025
     Route: 065

REACTIONS (4)
  - Non-small cell lung cancer metastatic [Unknown]
  - Central nervous system lesion [Unknown]
  - Adverse event [Unknown]
  - Off label use [Unknown]
